FAERS Safety Report 16458865 (Version 1)
Quarter: 2019Q2

REPORT INFORMATION
  Report Type: Spontaneous
  Country: US (occurrence: US)
  Receive Date: 20190620
  Receipt Date: 20190620
  Transmission Date: 20190711
  Serious: No
  Sender: FDA-Public Use
  Company Number: US-THERAPEUTICSMD-2019TMD01046

PATIENT
  Age: 69 Year
  Sex: Female
  Weight: 55.56 kg

DRUGS (5)
  1. RECLAST [Concomitant]
     Active Substance: ZOLEDRONIC ACID
     Dosage: UNK, 1X/YEAR
     Route: 042
  2. IMVEXXY [Suspect]
     Active Substance: ESTRADIOL
     Indication: VULVOVAGINAL DRYNESS
     Dosage: 10 ?G, 2X/WEEK ON TUESDAY AND FRIDAY MORNING, REMAINING UPRIGHT AFTER INSERTION
     Route: 067
     Dates: start: 20190514
  3. PREDNISONE. [Concomitant]
     Active Substance: PREDNISONE
     Dosage: 4 MG, 1X/DAY
     Dates: start: 2007
  4. LEVOTHYROXINE. [Concomitant]
     Active Substance: LEVOTHYROXINE
     Dosage: 0.50 MG, 1X/DAY
  5. LISINOPRIL. [Concomitant]
     Active Substance: LISINOPRIL
     Dosage: 10 MG, 1X/DAY

REACTIONS (3)
  - Product residue present [Recovered/Resolved]
  - Off label use [Not Recovered/Not Resolved]
  - Vaginal discharge [Not Recovered/Not Resolved]

NARRATIVE: CASE EVENT DATE: 20190514
